FAERS Safety Report 14557355 (Version 1)
Quarter: 2018Q1

REPORT INFORMATION
  Report Type: Spontaneous
  Country: US (occurrence: US)
  Receive Date: 20180221
  Receipt Date: 20180221
  Transmission Date: 20180509
  Serious: No
  Sender: FDA-Public Use
  Company Number: US-GLAXOSMITHKLINE-US2018024693

PATIENT
  Age: 25 Year
  Sex: Male

DRUGS (1)
  1. ABREVA [Suspect]
     Active Substance: DOCOSANOL
     Indication: ORAL HERPES
     Dosage: UNK

REACTIONS (5)
  - Oral herpes [Unknown]
  - Hypersensitivity [Unknown]
  - Swelling [Unknown]
  - Condition aggravated [Unknown]
  - Drug ineffective [Unknown]
